FAERS Safety Report 14659800 (Version 12)
Quarter: 2019Q2

REPORT INFORMATION
  Report Type: Report from Study
  Country: US (occurrence: US)
  Receive Date: 20180320
  Receipt Date: 20190628
  Transmission Date: 20190711
  Serious: Yes (Life-Threatening, Hospitalization, Other)
  Sender: FDA-Public Use
  Company Number: US-SA-2018SA074660

PATIENT
  Age: 34 Year
  Sex: Female
  Weight: 77 kg

DRUGS (19)
  1. ALEMTUZUMAB [Suspect]
     Active Substance: ALEMTUZUMAB
     Indication: MULTIPLE SCLEROSIS RELAPSE
     Dosage: 12 MG,QD
     Route: 041
     Dates: start: 20180212, end: 20180216
  2. DRONABINOL. [Concomitant]
     Active Substance: DRONABINOL
     Indication: MULTIPLE SCLEROSIS
     Dosage: 5 MG,QD
     Route: 048
     Dates: start: 20120202
  3. BACLOFEN. [Concomitant]
     Active Substance: BACLOFEN
     Indication: MULTIPLE SCLEROSIS
     Dosage: 20 MG,QD
     Route: 048
     Dates: start: 20071016
  4. FLUOXETINE [Concomitant]
     Active Substance: FLUOXETINE HYDROCHLORIDE
     Indication: DEPRESSION
     Dosage: 20 MG,QD
     Route: 048
     Dates: start: 20151218
  5. DULCOLAX (BISACODYL) [Concomitant]
     Active Substance: BISACODYL
     Dosage: 10 MG, QD
     Route: 054
     Dates: start: 20180721, end: 20180721
  6. BENADRYL [Concomitant]
     Active Substance: DIPHENHYDRAMINE HYDROCHLORIDE
     Indication: PROPHYLAXIS
     Dosage: 50 MG,QD
     Route: 042
     Dates: start: 20180212, end: 20180216
  7. OXYBUTYNIN. [Concomitant]
     Active Substance: OXYBUTYNIN CHLORIDE
     Indication: MULTIPLE SCLEROSIS
     Dosage: 5 MG,QD
     Route: 048
     Dates: start: 20160920
  8. DEXAMETHASONE. [Concomitant]
     Active Substance: DEXAMETHASONE
     Indication: PROPHYLAXIS
     Dosage: 180 MG,QD
     Route: 042
     Dates: start: 20180212, end: 20180216
  9. ZYRTEC [Concomitant]
     Active Substance: CETIRIZINE HYDROCHLORIDE
     Indication: PROPHYLAXIS
     Dosage: 10 MG,QD
     Route: 048
     Dates: start: 20180212
  10. ZANTAC [Concomitant]
     Active Substance: RANITIDINE HYDROCHLORIDE
     Indication: PROPHYLAXIS
     Dosage: 150 MG,QD
     Route: 048
     Dates: start: 20180212
  11. MIRALAX [Concomitant]
     Active Substance: POLYETHYLENE GLYCOL 3350
     Indication: MULTIPLE SCLEROSIS
     Dosage: 17 G, QD
     Route: 048
     Dates: start: 20180225, end: 20180225
  12. ACETAMINOPHEN. [Concomitant]
     Active Substance: ACETAMINOPHEN
     Indication: PROPHYLAXIS
     Dosage: 975 MG,QD
     Route: 048
     Dates: start: 20180212, end: 20180216
  13. LYRICA [Concomitant]
     Active Substance: PREGABALIN
     Indication: MULTIPLE SCLEROSIS
     Dosage: 100 MG,QD
     Route: 048
     Dates: start: 20171028, end: 20180510
  14. ACICLOVIR [Concomitant]
     Active Substance: ACYCLOVIR
     Indication: PROPHYLAXIS
     Dosage: 200 MG,QD
     Route: 048
     Dates: start: 20180212
  15. SENNA [SENNOSIDE A+B] [Concomitant]
     Indication: MULTIPLE SCLEROSIS
     Dosage: 2 DF, QD
     Route: 048
     Dates: start: 20180720, end: 20180726
  16. POLYETHYLENE GLYCOL [Concomitant]
     Active Substance: POLYETHYLENE GLYCOLS
     Indication: MULTIPLE SCLEROSIS
     Dosage: 34 G, QD
     Route: 048
     Dates: start: 20180720, end: 20180730
  17. COLACE [Concomitant]
     Active Substance: DOCUSATE SODIUM
     Indication: MULTIPLE SCLEROSIS
     Dosage: 100 UNK
     Route: 002
     Dates: start: 20180226, end: 20180226
  18. AMBIEN [Concomitant]
     Active Substance: ZOLPIDEM TARTRATE
     Indication: INSOMNIA
     Dosage: 10 MG,QD
     Route: 048
     Dates: start: 20180103
  19. COLACE [Concomitant]
     Active Substance: DOCUSATE SODIUM
     Dosage: 200 MG, QD
     Route: 048
     Dates: start: 20180719

REACTIONS (29)
  - Pyrexia [Recovered/Resolved]
  - Nausea [Recovered/Resolved]
  - Rash erythematous [Recovered/Resolved]
  - Contusion [Not Recovered/Not Resolved]
  - Sepsis [Recovered/Resolved]
  - Atelectasis [Recovered/Resolved]
  - Chest discomfort [Recovered/Resolved]
  - Nausea [Recovered/Resolved]
  - Pleural fibrosis [Recovered/Resolved with Sequelae]
  - Acute kidney injury [Recovered/Resolved]
  - Escherichia urinary tract infection [Recovered/Resolved]
  - Neuralgia [Not Recovered/Not Resolved]
  - Vision blurred [Recovered/Resolved]
  - Haematuria [Recovered/Resolved]
  - Pulmonary embolism [Recovered/Resolved]
  - Iron deficiency anaemia [Recovered/Resolved]
  - Neutropenia [Recovered/Resolved]
  - Chest discomfort [Recovered/Resolved]
  - Eye pain [Recovered/Resolved]
  - Blood potassium decreased [Recovered/Resolved]
  - Malaise [Recovered/Resolved]
  - Throat irritation [Recovered/Resolved]
  - Cough [Recovered/Resolved]
  - Chills [Recovered/Resolved]
  - Vomiting [Recovered/Resolved]
  - Muscle spasms [Not Recovered/Not Resolved]
  - Arthralgia [Recovered/Resolved]
  - Eosinophilic cystitis [Recovered/Resolved]
  - Fall [Recovered/Resolved]

NARRATIVE: CASE EVENT DATE: 20180213
